FAERS Safety Report 7390959-5 (Version None)
Quarter: 2011Q2

REPORT INFORMATION
  Report Type: 
  Country: None (occurrence: None)
  Receive Date: 20110404
  Receipt Date: 20110329
  Transmission Date: 20111010
  Serious: Yes (Other)
  Sender: FDA-Public Use
  Company Number: US-PFIZER INC-2011067594

PATIENT
  Sex: Male
  Weight: 65.76 kg

DRUGS (1)
  1. VIAGRA [Suspect]
     Indication: ERECTILE DYSFUNCTION
     Dosage: 5 MG, AS NEEDED
     Route: 048
     Dates: start: 20110201

REACTIONS (1)
  - ERECTION INCREASED [None]
